FAERS Safety Report 25095222 (Version 1)
Quarter: 2025Q1

REPORT INFORMATION
  Report Type: Spontaneous
  Country: US (occurrence: US)
  Receive Date: 20250319
  Receipt Date: 20250319
  Transmission Date: 20250409
  Serious: No
  Sender: GALDERMA
  Company Number: US-GALDERMA-US2024017207

PATIENT

DRUGS (1)
  1. DIFFERIN GEL [Suspect]
     Active Substance: ADAPALENE
     Indication: Acne
     Route: 061
     Dates: start: 202411, end: 202411

REACTIONS (12)
  - Headache [Recovered/Resolved]
  - Skin burning sensation [Unknown]
  - Erythema [Unknown]
  - Skin swelling [Unknown]
  - Skin exfoliation [Unknown]
  - Gait disturbance [Unknown]
  - Pain [Unknown]
  - Pruritus [Unknown]
  - Sensitive skin [Unknown]
  - Swelling face [Unknown]
  - Cushingoid [Unknown]
  - Oral discomfort [Unknown]

NARRATIVE: CASE EVENT DATE: 20241101
